FAERS Safety Report 8117397-1 (Version None)
Quarter: 2012Q1

REPORT INFORMATION
  Report Type: 
  Country: None (occurrence: None)
  Receive Date: 20120206
  Receipt Date: 20120127
  Transmission Date: 20120608
  Serious: Yes (Other)
  Sender: FDA-Public Use
  Company Number: US-ASTRAZENECA-2012SE05802

PATIENT
  Age: 66 Year
  Sex: Female

DRUGS (1)
  1. NEXIUM [Suspect]
     Indication: GASTROOESOPHAGEAL REFLUX DISEASE
     Route: 048

REACTIONS (23)
  - HEADACHE [None]
  - FREQUENT BOWEL MOVEMENTS [None]
  - GASTROINTESTINAL SOUNDS ABNORMAL [None]
  - BLOOD PRESSURE INCREASED [None]
  - HICCUPS [None]
  - RETCHING [None]
  - OEDEMA PERIPHERAL [None]
  - CHOKING [None]
  - FALL [None]
  - DYSPHONIA [None]
  - DYSPEPSIA [None]
  - DYSPHAGIA [None]
  - ABDOMINAL DISTENSION [None]
  - IRRITABLE BOWEL SYNDROME [None]
  - NAUSEA [None]
  - ERUCTATION [None]
  - FLATULENCE [None]
  - DIZZINESS [None]
  - VOMITING [None]
  - LIGAMENT SPRAIN [None]
  - ASTHENIA [None]
  - DYSGEUSIA [None]
  - ABDOMINAL PAIN [None]
